FAERS Safety Report 19013132 (Version 4)
Quarter: 2021Q3

REPORT INFORMATION
  Report Type: Report from Study
  Country: IT (occurrence: IT)
  Receive Date: 20210315
  Receipt Date: 20210705
  Transmission Date: 20211014
  Serious: Yes (Hospitalization)
  Sender: FDA-Public Use
  Company Number: IT-PFIZER INC-2021238232

PATIENT
  Age: 82 Year
  Sex: Female
  Weight: 95 kg

DRUGS (28)
  1. TRASTUZUMAB. [Suspect]
     Active Substance: TRASTUZUMAB
     Indication: BREAST CANCER
     Dosage: 760 MG, EVERY 3 WEEKS
     Route: 041
     Dates: start: 20170407, end: 20170407
  2. PERTUZUMAB. [Suspect]
     Active Substance: PERTUZUMAB
     Dosage: 420 MG, EVERY 3 WEEKS
     Route: 042
     Dates: start: 20170428, end: 20180510
  3. PACLITAXEL. [Suspect]
     Active Substance: PACLITAXEL
     Indication: BREAST CANCER
     Dosage: 160 MG, WEEKLY
     Route: 042
     Dates: start: 20170407, end: 20170602
  4. OXYCODONE [Concomitant]
     Active Substance: OXYCODONE
     Dates: start: 20190608, end: 20190913
  5. FLUCONAZOLE. [Concomitant]
     Active Substance: FLUCONAZOLE
     Indication: PAIN
     Dates: start: 20190902, end: 20190910
  6. DULOXETINE. [Concomitant]
     Active Substance: DULOXETINE
     Dates: end: 20190913
  7. NORVASC [Concomitant]
     Active Substance: AMLODIPINE BESYLATE
     Dates: end: 20190913
  8. RANITIDINE. [Concomitant]
     Active Substance: RANITIDINE
     Dates: start: 20190530, end: 20190913
  9. EXEMESTANE. [Suspect]
     Active Substance: EXEMESTANE
     Indication: BREAST CANCER
     Dosage: 25 MG, 1X/DAY
     Route: 048
     Dates: start: 20171207, end: 20180604
  10. TRASTUZUMAB. [Suspect]
     Active Substance: TRASTUZUMAB
     Dosage: 528 MG, EVERY 3 WEEKS
     Route: 041
     Dates: start: 20190307, end: 20190509
  11. LETROZOLE. [Suspect]
     Active Substance: LETROZOLE
     Indication: BREAST CANCER
     Dosage: 2.5 MG, 1X/DAY
     Route: 048
     Dates: start: 20170616, end: 20171207
  12. MORPHINE SULFATE. [Concomitant]
     Active Substance: MORPHINE SULFATE
     Dates: start: 20190608, end: 20190913
  13. ALPRAZOLAM. [Concomitant]
     Active Substance: ALPRAZOLAM
     Dates: start: 20190530, end: 20190913
  14. LETROZOLE. [Suspect]
     Active Substance: LETROZOLE
     Dosage: 2.5 MG, 1X/DAY MOST RECENT DOSE PRIOR TO THE EVENT: 24MAY2019
     Route: 048
     Dates: start: 20181109, end: 20190524
  15. ALLOPURINOL. [Concomitant]
     Active Substance: ALLOPURINOL
     Dates: end: 20190913
  16. TRASTUZUMAB. [Suspect]
     Active Substance: TRASTUZUMAB
     Dosage: 600 MG, EVERY 3 WEEKS
     Route: 041
     Dates: start: 20181120, end: 20190214
  17. PREDNISONE. [Concomitant]
     Active Substance: PREDNISONE
     Indication: ASTHENIA
     Dates: start: 20190530, end: 20190913
  18. TRASTUZUMAB. [Suspect]
     Active Substance: TRASTUZUMAB
     Dosage: 564 MG, EVERY 3 WEEKS
     Route: 041
     Dates: start: 20170519, end: 20180510
  19. DESAMETASONE [Concomitant]
     Active Substance: DEXAMETHASONE
     Dates: start: 20170407, end: 20190808
  20. HYDROCHLOROTHIAZIDE. [Concomitant]
     Active Substance: HYDROCHLOROTHIAZIDE
     Dates: end: 20190913
  21. ENOXAPARIN [Concomitant]
     Active Substance: ENOXAPARIN
     Dates: start: 20190613, end: 20190913
  22. EPIRUBICIN HCL [Suspect]
     Active Substance: EPIRUBICIN HYDROCHLORIDE
     Indication: BREAST CANCER
     Dosage: 48 MG, WEEKLY
     Route: 042
     Dates: start: 20190622, end: 20190808
  23. TRASTUZUMAB. [Suspect]
     Active Substance: TRASTUZUMAB
     Dosage: 564 MG, EVERY 3 WEEKS
     Route: 041
     Dates: start: 20170428, end: 20170519
  24. TRASTUZUMAB EMTANSINE [Suspect]
     Active Substance: ADO-TRASTUZUMAB EMTANSINE
     Indication: BREAST CANCER
     Dosage: 324 MG, EVERY 3 WEEKS
     Route: 042
     Dates: start: 20180606, end: 20180829
  25. PERTUZUMAB. [Suspect]
     Active Substance: PERTUZUMAB
     Indication: BREAST CANCER
     Dosage: 840 MG, EVERY 3 WEEKS
     Route: 042
     Dates: start: 20170407, end: 20170407
  26. TELMISARTAN. [Concomitant]
     Active Substance: TELMISARTAN
     Dates: end: 20190913
  27. BISOPROLOL FUMARATE. [Concomitant]
     Active Substance: BISOPROLOL FUMARATE
     Indication: PAIN
     Dates: start: 20190902, end: 20190910
  28. PARACETAMOL [Concomitant]
     Active Substance: ACETAMINOPHEN
     Dates: start: 20170825, end: 20190913

REACTIONS (1)
  - Pain [Recovered/Resolved]

NARRATIVE: CASE EVENT DATE: 20190902
